FAERS Safety Report 18738022 (Version 1)
Quarter: 2021Q1

REPORT INFORMATION
  Report Type: Report from Study
  Country: US (occurrence: US)
  Receive Date: 20210114
  Receipt Date: 20210114
  Transmission Date: 20210419
  Serious: Yes (Life-Threatening, Other)
  Sender: FDA-Public Use
  Company Number: US-ASTRAZENECA-2021A003465

PATIENT
  Age: 28 Year
  Sex: Female

DRUGS (4)
  1. NAPROXEN. [Suspect]
     Active Substance: NAPROXEN
     Route: 065
  2. QUETIAPINE. [Suspect]
     Active Substance: QUETIAPINE
     Route: 048
  3. LAMOTRIGINE. [Suspect]
     Active Substance: LAMOTRIGINE
     Route: 065
  4. BENZTROPINE. [Suspect]
     Active Substance: BENZTROPINE
     Route: 065

REACTIONS (6)
  - Hyperreflexia [Recovering/Resolving]
  - Coma [Recovering/Resolving]
  - Muscle rigidity [Unknown]
  - Intentional overdose [Unknown]
  - Agitation [Recovered/Resolved]
  - Clonus [Recovering/Resolving]
